FAERS Safety Report 19951229 (Version 2)
Quarter: 2021Q4

REPORT INFORMATION
  Report Type: Spontaneous
  Country: BE (occurrence: BE)
  Receive Date: 20211013
  Receipt Date: 20211019
  Transmission Date: 20220303
  Serious: Yes (Other)
  Sender: FDA-Public Use
  Company Number: BE-PFIZER INC-2021732688

PATIENT
  Age: 55 Year
  Sex: Male

DRUGS (15)
  1. CYTARABINE [Suspect]
     Active Substance: CYTARABINE
     Indication: Mantle cell lymphoma
     Dosage: UNK UNK, CYCLE
  2. CYTARABINE [Suspect]
     Active Substance: CYTARABINE
     Indication: B-cell lymphoma
  3. CYTARABINE [Suspect]
     Active Substance: CYTARABINE
     Indication: Chemotherapy
  4. CISPLATIN [Suspect]
     Active Substance: CISPLATIN
     Indication: Mantle cell lymphoma
     Dosage: UNK UNK, CYCLE
  5. CISPLATIN [Suspect]
     Active Substance: CISPLATIN
     Indication: Chemotherapy
  6. CISPLATIN [Suspect]
     Active Substance: CISPLATIN
     Indication: B-cell lymphoma
  7. DEXAMETHASONE [Suspect]
     Active Substance: DEXAMETHASONE
     Indication: Mantle cell lymphoma
     Dosage: UNK UNK, CYCLE
  8. DEXAMETHASONE [Suspect]
     Active Substance: DEXAMETHASONE
     Indication: Chemotherapy
  9. DEXAMETHASONE [Suspect]
     Active Substance: DEXAMETHASONE
     Indication: B-cell lymphoma
  10. MABTHERA [Suspect]
     Active Substance: RITUXIMAB
     Indication: Mantle cell lymphoma
     Dosage: UNK UNK, CYCLE
  11. MABTHERA [Suspect]
     Active Substance: RITUXIMAB
     Indication: Chemotherapy
  12. MABTHERA [Suspect]
     Active Substance: RITUXIMAB
     Indication: B-cell lymphoma
  13. COTRIMOXAZOLE [Suspect]
     Active Substance: SULFAMETHOXAZOLE\TRIMETHOPRIM
     Indication: Prophylaxis
     Dosage: UNK (4 TABLETS/WEEK)
  14. NEUPOGEN [Suspect]
     Active Substance: FILGRASTIM
     Indication: B-cell lymphoma
     Dosage: UNK
  15. ITRACONAZOLE [Suspect]
     Active Substance: ITRACONAZOLE
     Indication: Prophylaxis
     Dosage: 20 ML, DAILY, ITRACONAZOLE SUSPENSION

REACTIONS (4)
  - Peritonitis bacterial [Recovered/Resolved]
  - Colitis [Recovered/Resolved]
  - Aplasia [Unknown]
  - Diarrhoea [Unknown]
